FAERS Safety Report 4304466-7 (Version None)
Quarter: 2004Q1

REPORT INFORMATION
  Report Type: 
  Country: None (occurrence: None)
  Receive Date: 20040225
  Receipt Date: 20040225
  Transmission Date: 20041129
  Serious: Yes (Hospitalization)
  Sender: FDA-Public Use
  Company Number: None

PATIENT
  Age: 80 Year
  Sex: Female
  Weight: 118.3888 kg

DRUGS (10)
  1. PAROXETINE HCL [Suspect]
     Indication: DEPRESSION
     Dosage: 20 MG PO QD
     Route: 048
  2. WARFARIN SODIUM [Suspect]
     Indication: ANTICOAGULANT THERAPY
     Dosage: 2.5 MG PO QD
     Route: 048
  3. WARFARIN SODIUM [Suspect]
     Indication: ATRIAL FIBRILLATION
     Dosage: 2.5 MG PO QD
     Route: 048
  4. GABAPENTIN [Concomitant]
  5. ECOTRIN [Concomitant]
  6. FA [Concomitant]
  7. FOSAMAX [Concomitant]
  8. COUMADIN [Concomitant]
  9. ACIPHEX [Concomitant]
  10. ATENOLOL [Concomitant]

REACTIONS (2)
  - INTRAVENTRICULAR HAEMORRHAGE [None]
  - PROTHROMBIN TIME PROLONGED [None]
